FAERS Safety Report 18339606 (Version 3)
Quarter: 2020Q4

REPORT INFORMATION
  Report Type: Spontaneous
  Country: US (occurrence: US)
  Receive Date: 20201002
  Receipt Date: 20201007
  Transmission Date: 20210113
  Serious: Yes (Other)
  Sender: FDA-Public Use
  Company Number: US-GLAXOSMITHKLINE-US2020190553

PATIENT
  Age: 27 Year
  Sex: Female

DRUGS (2)
  1. BENLYSTA [Suspect]
     Active Substance: BELIMUMAB
     Indication: PRODUCT USED FOR UNKNOWN INDICATION
     Dosage: UNK
     Route: 042
     Dates: start: 20200909
  2. ANORO ELLIPTA [Suspect]
     Active Substance: UMECLIDINIUM BROMIDE\VILANTEROL TRIFENATATE
     Indication: PRODUCT USED FOR UNKNOWN INDICATION
     Dosage: UNK
     Route: 065
     Dates: start: 20200928, end: 20200928

REACTIONS (14)
  - Dyspnoea [Recovered/Resolved]
  - Chest discomfort [Recovered/Resolved]
  - Loss of consciousness [Recovered/Resolved]
  - Urticaria [Not Recovered/Not Resolved]
  - Blood pressure increased [Recovered/Resolved]
  - Throat tightness [Recovered/Resolved]
  - Cough [Recovered/Resolved]
  - Hypersensitivity [Unknown]
  - Pyrexia [Recovered/Resolved]
  - Pain [Recovered/Resolved]
  - Heart rate increased [Not Recovered/Not Resolved]
  - Throat irritation [Recovered/Resolved]
  - Pharyngeal swelling [Recovered/Resolved]
  - Vomiting [Recovered/Resolved]

NARRATIVE: CASE EVENT DATE: 202009
